FAERS Safety Report 8605029-5 (Version None)
Quarter: 2012Q3

REPORT INFORMATION
  Report Type: 
  Country: None (occurrence: None)
  Receive Date: 20120807
  Receipt Date: 20120724
  Transmission Date: 20120928
  Serious: Yes (Hospitalization)
  Sender: FDA-Public Use
  Company Number: 2012AP002278

PATIENT
  Age: 57 Year
  Sex: Male

DRUGS (10)
  1. LANTUS [Suspect]
     Indication: PRODUCT USED FOR UNKNOWN INDICATION
  2. FERROUS SULFATE TAB [Suspect]
     Indication: PRODUCT USED FOR UNKNOWN INDICATION
  3. GABAPENTIN [Suspect]
     Indication: PRODUCT USED FOR UNKNOWN INDICATION
     Dosage: 900 MG;QD
  4. SEVELAMER HYDROCHLORIDE [Suspect]
     Indication: PRODUCT USED FOR UNKNOWN INDICATION
  5. FINASTERIDE [Suspect]
     Indication: PRODUCT USED FOR UNKNOWN INDICATION
  6. LACTULOSE [Suspect]
     Indication: PRODUCT USED FOR UNKNOWN INDICATION
  7. ASPIRIN [Suspect]
     Indication: PRODUCT USED FOR UNKNOWN INDICATION
  8. DOCUSATE [Suspect]
     Indication: PRODUCT USED FOR UNKNOWN INDICATION
  9. DILTIAZEM [Suspect]
     Indication: PRODUCT USED FOR UNKNOWN INDICATION
  10. TAMSULOSIN HCL [Suspect]
     Indication: PRODUCT USED FOR UNKNOWN INDICATION

REACTIONS (10)
  - MYOCLONUS [None]
  - DEPRESSED LEVEL OF CONSCIOUSNESS [None]
  - ALTERED STATE OF CONSCIOUSNESS [None]
  - TOXICITY TO VARIOUS AGENTS [None]
  - PAIN IN EXTREMITY [None]
  - METABOLIC DISORDER [None]
  - DRUG PRESCRIBING ERROR [None]
  - RENAL TUBULAR NECROSIS [None]
  - SOMNOLENCE [None]
  - RENAL FAILURE ACUTE [None]
